FAERS Safety Report 21934487 (Version 16)
Quarter: 2024Q3

REPORT INFORMATION
  Report Type: Spontaneous
  Country: CA (occurrence: CA)
  Receive Date: 20230201
  Receipt Date: 20240927
  Transmission Date: 20241016
  Serious: Yes (Other)
  Sender: PFIZER
  Company Number: CA-PFIZER INC-202300023744

PATIENT
  Age: 55 Year
  Sex: Female
  Weight: 86 kg

DRUGS (4)
  1. ABRILADA [Suspect]
     Active Substance: ADALIMUMAB-AFZB
     Indication: Crohn^s disease
     Dosage: 160 MG, WEEK 0 160 MG, WEEK 2 80 MG, THEN 40 MG EVERY OTHER WEEK
     Route: 058
     Dates: start: 20221118
  2. ABRILADA [Suspect]
     Active Substance: ADALIMUMAB-AFZB
     Dosage: 160 MG, WEEK 0 160 MG, WEEK 2 80 MG, THEN 40 MG EVERY OTHER WEEK(1 DF)
     Route: 058
     Dates: start: 20221118, end: 2023
  3. ABRILADA [Suspect]
     Active Substance: ADALIMUMAB-AFZB
     Dosage: 40 MG, WEEKLY
     Route: 058
     Dates: start: 2023
  4. MESALAMINE [Concomitant]
     Active Substance: MESALAMINE
     Dosage: UNK

REACTIONS (11)
  - Intestinal ulcer [Unknown]
  - Drug ineffective [Unknown]
  - Off label use [Unknown]
  - Condition aggravated [Not Recovered/Not Resolved]
  - Pain [Recovered/Resolved]
  - Weight increased [Not Recovered/Not Resolved]
  - Swelling [Not Recovered/Not Resolved]
  - Pruritus [Not Recovered/Not Resolved]
  - Urinary tract infection [Recovered/Resolved]
  - Blood urine present [Unknown]
  - Product contamination physical [Unknown]

NARRATIVE: CASE EVENT DATE: 20230101
